FAERS Safety Report 21577251 (Version 1)
Quarter: 2022Q4

REPORT INFORMATION
  Report Type: Report from Study
  Country: US (occurrence: US)
  Receive Date: 20221110
  Receipt Date: 20221110
  Transmission Date: 20230112
  Serious: No
  Sender: FDA-Public Use
  Company Number: US-ABBVIE-4139955

PATIENT
  Sex: Female

DRUGS (1)
  1. HUMIRA [Suspect]
     Active Substance: ADALIMUMAB
     Indication: Hidradenitis
     Dosage: CITRATE FREE, FORM STRENGTH 40 MG
     Route: 058
     Dates: end: 20220920

REACTIONS (5)
  - Injection site reaction [Not Recovered/Not Resolved]
  - Abdominal distension [Unknown]
  - Swelling [Unknown]
  - Pain [Unknown]
  - Induration [Unknown]
